FAERS Safety Report 8889849 (Version 1)
Quarter: 2012Q4

REPORT INFORMATION
  Report Type: 
  Country: US (occurrence: US)
  Receive Date: 20121107
  Receipt Date: 20121107
  Transmission Date: 20130627
  Serious: No
  Sender: FDA-Public Use
  Company Number: US-ABBOTT-12P-163-0986801-00

PATIENT
  Sex: Female
  Weight: 97.61 kg

DRUGS (12)
  1. TRICOR [Suspect]
     Indication: BLOOD CHOLESTEROL INCREASED
     Dosage: 145mg daily
  2. XANAX [Suspect]
     Indication: ANXIETY
     Route: 048
  3. XANAX [Suspect]
     Route: 048
  4. SERTRALINE HYDROCHLORIDE [Suspect]
     Indication: PAIN
     Dosage: 50mg daily (as presribed by physician)
  5. SERTRALINE HYDROCHLORIDE [Suspect]
     Indication: ARTHRALGIA
     Dosage: As prescribed by physician
  6. SERTRALINE HYDROCHLORIDE [Suspect]
     Indication: PAIN
  7. SERTRALINE HYDROCHLORIDE [Suspect]
     Indication: OSTEOPOROSIS
  8. SERTRALINE HYDROCHLORIDE [Suspect]
     Indication: FIBROMYALGIA
  9. ZETIA [Suspect]
     Indication: BLOOD CHOLESTEROL INCREASED
     Dosage: 10mg daily
  10. LEVOXYL [Concomitant]
     Indication: HYPOTHYROIDISM
     Dosage: 0.05mg daily in the morning
  11. FOLTX [Concomitant]
     Indication: VITAMIN SUPPLEMENTATION
     Dosage: 25mg daily
  12. ADVIL [Concomitant]
     Indication: PAIN
     Dosage: 200 mg up to two times daily as needed

REACTIONS (7)
  - Hepatic enzyme increased [Unknown]
  - Blood cholesterol increased [Unknown]
  - Wrong technique in drug usage process [Unknown]
  - Drug ineffective [Unknown]
  - Nausea [Not Recovered/Not Resolved]
  - Pain [Not Recovered/Not Resolved]
  - Gait disturbance [Not Recovered/Not Resolved]
